FAERS Safety Report 10666334 (Version 3)
Quarter: 2015Q1

REPORT INFORMATION
  Report Type: Report from Study
  Country: DE (occurrence: DE)
  Receive Date: 20141220
  Receipt Date: 20150128
  Transmission Date: 20150720
  Serious: Yes (Hospitalization)
  Sender: FDA-Public Use
  Company Number: DE-ABBVIE-14K-062-1322730-00

PATIENT
  Age: 10 Year
  Sex: Male
  Weight: 35 kg

DRUGS (7)
  1. METHOTREXATE [Concomitant]
     Active Substance: METHOTREXATE
     Route: 058
     Dates: start: 20140515
  2. INFLANEFRAN [Concomitant]
     Indication: UVEITIS
  3. ETANERCEPT [Concomitant]
     Active Substance: ETANERCEPT
     Indication: PRODUCT USED FOR UNKNOWN INDICATION
     Dates: start: 20100930, end: 20101208
  4. METHOTREXATE [Concomitant]
     Active Substance: METHOTREXATE
     Indication: JUVENILE IDIOPATHIC ARTHRITIS
     Route: 058
     Dates: start: 20100801, end: 20120820
  5. HUMIRA [Suspect]
     Active Substance: ADALIMUMAB
     Indication: JUVENILE IDIOPATHIC ARTHRITIS
     Route: 058
     Dates: start: 20101209, end: 20130827
  6. HUMIRA [Suspect]
     Active Substance: ADALIMUMAB
     Route: 058
  7. INFLANEFRAN [Concomitant]
     Indication: JUVENILE IDIOPATHIC ARTHRITIS
     Route: 047
     Dates: start: 20140301

REACTIONS (1)
  - Migraine [Recovered/Resolved]

NARRATIVE: CASE EVENT DATE: 20140515
